FAERS Safety Report 13752255 (Version 4)
Quarter: 2017Q4

REPORT INFORMATION
  Report Type: Report from Study
  Country: US (occurrence: US)
  Receive Date: 20170713
  Receipt Date: 20171011
  Transmission Date: 20180320
  Serious: Yes (Other)
  Sender: FDA-Public Use
  Company Number: US-JAZZ-2017-US-004335

PATIENT
  Sex: Female

DRUGS (15)
  1. IMITREX [Concomitant]
     Active Substance: SUMATRIPTAN SUCCINATE
  2. FLUOXETINE HCL [Concomitant]
     Active Substance: FLUOXETINE HYDROCHLORIDE
  3. XYREM [Suspect]
     Active Substance: SODIUM OXYBATE
     Dosage: DOSE ADJUSTMENT
     Route: 048
     Dates: start: 201611, end: 201612
  4. NUVIGIL [Concomitant]
     Active Substance: ARMODAFINIL
  5. ABILIFY [Concomitant]
     Active Substance: ARIPIPRAZOLE
  6. NAPROXEN. [Concomitant]
     Active Substance: NAPROXEN
  7. MACROBID [Concomitant]
     Active Substance: NITROFURANTOIN\NITROFURANTOIN MONOHYDRATE
  8. ADDERALL [Concomitant]
     Active Substance: AMPHETAMINE ASPARTATE\AMPHETAMINE SULFATE\DEXTROAMPHETAMINE SACCHARATE\DEXTROAMPHETAMINE SULFATE
  9. LEVOTHYROXINE. [Concomitant]
     Active Substance: LEVOTHYROXINE
  10. FIORICET [Concomitant]
     Active Substance: ACETAMINOPHEN\BUTALBITAL\CAFFEINE
  11. IBUPROFEN. [Concomitant]
     Active Substance: IBUPROFEN
  12. XYREM [Suspect]
     Active Substance: SODIUM OXYBATE
     Dosage: 3.5 G, BID
     Route: 048
  13. XYREM [Suspect]
     Active Substance: SODIUM OXYBATE
     Indication: NARCOLEPSY
     Dosage: 2.25 G, BID
     Route: 048
     Dates: start: 201611, end: 201611
  14. XYREM [Suspect]
     Active Substance: SODIUM OXYBATE
     Dosage: 4.5 G, BID
     Route: 048
     Dates: start: 201612
  15. NUVARING [Concomitant]
     Active Substance: ETHINYL ESTRADIOL\ETONOGESTREL

REACTIONS (9)
  - Weight decreased [Recovering/Resolving]
  - Confusional state [Unknown]
  - Enuresis [Unknown]
  - Limb injury [Unknown]
  - Condition aggravated [Recovering/Resolving]
  - Somnambulism [Unknown]
  - Night sweats [Unknown]
  - Nasopharyngitis [Unknown]
  - Abnormal sleep-related event [Unknown]
